FAERS Safety Report 4458526-0 (Version None)
Quarter: 2004Q3

REPORT INFORMATION
  Report Type: 
  Country: None (occurrence: None)
  Receive Date: 20040922
  Receipt Date: 20040323
  Transmission Date: 20050211
  Serious: Yes (Other)
  Sender: FDA-Public Use
  Company Number: US-SHR-03-010840

PATIENT
  Age: 46 Year
  Sex: Female
  Weight: 61.2 kg

DRUGS (15)
  1. BETASERON [Suspect]
     Indication: MULTIPLE SCLEROSIS
     Dosage: SEE IMAGE
     Route: 058
     Dates: start: 20010101, end: 20020101
  2. BETASERON [Suspect]
     Indication: MULTIPLE SCLEROSIS
     Dosage: SEE IMAGE
     Route: 058
     Dates: start: 20020101, end: 20020520
  3. BETASERON [Suspect]
     Indication: MULTIPLE SCLEROSIS
     Dosage: SEE IMAGE
     Route: 058
     Dates: start: 20020520, end: 20030701
  4. BETASERON [Suspect]
     Indication: MULTIPLE SCLEROSIS
     Dosage: SEE IMAGE
     Route: 058
     Dates: start: 20030701, end: 20030806
  5. BETASERON [Suspect]
     Indication: MULTIPLE SCLEROSIS
     Dosage: SEE IMAGE
     Route: 058
     Dates: start: 20030806
  6. . [Concomitant]
  7. PROZAC [Concomitant]
  8. BACLOFEN [Concomitant]
  9. DEPAKOTE [Concomitant]
  10. FIORINAL (ACETYLSALICYLIC ACID) [Concomitant]
  11. TRAZODONE HCL [Concomitant]
  12. ADVIL [Concomitant]
  13. TYLENOL [Concomitant]
  14. IMITREX ^GLAXO WELLCOME^ (SUMATRIPAN SUCCINATE) [Concomitant]
  15. VERAPAMIL [Concomitant]

REACTIONS (4)
  - INJECTION SITE NECROSIS [None]
  - INJECTION SITE REACTION [None]
  - LEUKOPENIA [None]
  - NEUTROPENIA [None]
